FAERS Safety Report 4650477-1 (Version None)
Quarter: 2005Q2

REPORT INFORMATION
  Report Type: 
  Country: None (occurrence: None)
  Receive Date: 20050502
  Receipt Date: 20021014
  Transmission Date: 20051028
  Serious: Yes (Hospitalization, Disabling)
  Sender: FDA-Public Use
  Company Number: US-MERCK-0210USA01493

PATIENT
  Age: 75 Year
  Sex: Female
  Weight: 80 kg

DRUGS (10)
  1. VIOXX [Suspect]
     Indication: ARTHRALGIA
     Route: 048
     Dates: start: 20001117
  2. ATENOLOL [Concomitant]
     Route: 065
  3. ASPIRIN [Concomitant]
     Route: 065
  4. ZOLOFT [Concomitant]
     Route: 065
  5. LIPITOR [Concomitant]
     Route: 065
     Dates: end: 20010501
  6. NIASPAN [Concomitant]
     Route: 065
  7. IRON (UNSPECIFIED) [Concomitant]
     Route: 065
  8. ACETAMINOPHEN [Concomitant]
     Route: 065
  9. LOPRESSOR [Concomitant]
     Route: 065
     Dates: start: 20000817, end: 20001001
  10. HERBS (UNSPECIFIED) [Concomitant]
     Route: 065

REACTIONS (34)
  - AGEUSIA [None]
  - ANOSMIA [None]
  - ARTHROPATHY [None]
  - CARDIOMEGALY [None]
  - COLON ADENOMA [None]
  - DECREASED APPETITE [None]
  - DEEP VEIN THROMBOSIS [None]
  - EMOTIONAL DISTRESS [None]
  - ESSENTIAL HYPERTENSION [None]
  - FAECAL INCONTINENCE [None]
  - FATIGUE [None]
  - FIBROMYALGIA [None]
  - HAEMANGIOMA [None]
  - HAEMATOCHEZIA [None]
  - HYPERCOAGULATION [None]
  - HYPERTENSION [None]
  - INJURY [None]
  - LUMBAR SPINAL STENOSIS [None]
  - MACULAR DEGENERATION [None]
  - MENISCUS LESION [None]
  - NAUSEA [None]
  - NEPHROLITHIASIS [None]
  - OSTEOPENIA [None]
  - OSTEOPOROSIS [None]
  - PANCREATITIS [None]
  - PULMONARY EMBOLISM [None]
  - PULMONARY HYPERTENSION [None]
  - RECTAL HAEMORRHAGE [None]
  - RENAL DISORDER [None]
  - SKELETAL INJURY [None]
  - THROMBOPHLEBITIS [None]
  - URINARY INCONTINENCE [None]
  - WEIGHT DECREASED [None]
  - WEIGHT INCREASED [None]
